FAERS Safety Report 23868194 (Version 1)
Quarter: 2024Q2

REPORT INFORMATION
  Report Type: Report from Study
  Country: US (occurrence: US)
  Receive Date: 20240517
  Receipt Date: 20240517
  Transmission Date: 20240716
  Serious: Yes (Other)
  Sender: FDA-Public Use
  Company Number: US-Stemline Therapeutics, Inc.-2024ST002184

PATIENT
  Age: 67 Year
  Sex: Female
  Weight: 70.37 kg

DRUGS (3)
  1. ORSERDU [Suspect]
     Active Substance: ELACESTRANT
     Indication: Breast cancer metastatic
     Route: 048
     Dates: start: 20230419, end: 20240315
  2. PERCOCET [Concomitant]
     Active Substance: ACETAMINOPHEN\OXYCODONE HYDROCHLORIDE
     Indication: Pain
     Dosage: 5/325MG
     Route: 048
     Dates: start: 2015
  3. ZOFRAN [Concomitant]
     Active Substance: ONDANSETRON HYDROCHLORIDE
     Indication: Nausea
     Dosage: 4MG
     Route: 048
     Dates: start: 2015

REACTIONS (4)
  - Lung neoplasm malignant [Unknown]
  - Hepatic neoplasm [Unknown]
  - Adverse drug reaction [Unknown]
  - Disease progression [Not Recovered/Not Resolved]

NARRATIVE: CASE EVENT DATE: 20240301
